FAERS Safety Report 14552408 (Version 2)
Quarter: 2018Q4

REPORT INFORMATION
  Report Type: Spontaneous
  Country: BR (occurrence: BR)
  Receive Date: 20180220
  Receipt Date: 20181108
  Transmission Date: 20190204
  Serious: Yes (Other)
  Sender: FDA-Public Use
  Company Number: BR-GLAXOSMITHKLINE-BR2018GSK026503

PATIENT
  Sex: Female
  Weight: 65 kg

DRUGS (4)
  1. WELLBUTRIN SR [Suspect]
     Active Substance: BUPROPION HYDROCHLORIDE
     Indication: DEPRESSION
  2. WELLBUTRIN SR [Suspect]
     Active Substance: BUPROPION HYDROCHLORIDE
     Indication: PANIC ATTACK
     Dosage: 2 DF, BID
  3. WELLBUTRIN XL [Suspect]
     Active Substance: BUPROPION HYDROCHLORIDE
     Indication: PANIC DISORDER
     Dosage: 2 DF, U
  4. WELLBUTRIN XL [Suspect]
     Active Substance: BUPROPION HYDROCHLORIDE
     Indication: DEPRESSION

REACTIONS (9)
  - Apathy [Unknown]
  - Product availability issue [Unknown]
  - Drug dependence [Unknown]
  - Suicidal ideation [Unknown]
  - Panic disorder [Unknown]
  - Expired product administered [Recovered/Resolved]
  - Depression [Unknown]
  - Feeling abnormal [Unknown]
  - Spinal pain [Unknown]
